FAERS Safety Report 9997195 (Version 1)
Quarter: 2014Q1

REPORT INFORMATION
  Report Type: Spontaneous
  Country: US (occurrence: US)
  Receive Date: 20140311
  Receipt Date: 20140311
  Transmission Date: 20141002
  Serious: No
  Sender: FDA-Public Use
  Company Number: US-GLAXOSMITHKLINE-A1022022A

PATIENT
  Age: 62 Year
  Sex: Female

DRUGS (1)
  1. WALGREENS NICOTINE LOZENGE MINT 4MG [Suspect]
     Indication: EX-TOBACCO USER
     Dates: start: 201302, end: 201304

REACTIONS (3)
  - Oropharyngeal pain [Not Recovered/Not Resolved]
  - Throat irritation [Not Recovered/Not Resolved]
  - Throat irritation [Not Recovered/Not Resolved]
